FAERS Safety Report 16208586 (Version 2)
Quarter: 2019Q2

REPORT INFORMATION
  Report Type: Spontaneous
  Country: US (occurrence: US)
  Receive Date: 20190417
  Receipt Date: 20190510
  Transmission Date: 20190711
  Serious: Yes (Hospitalization)
  Sender: FDA-Public Use
  Company Number: US-LUNDBECK-DKLU2065803

PATIENT
  Age: 88 Year
  Sex: Male

DRUGS (2)
  1. NORTHERA [Suspect]
     Active Substance: DROXIDOPA
     Indication: ORTHOSTATIC HYPOTENSION
     Route: 065
     Dates: start: 201802, end: 20190410
  2. NORTHERA [Suspect]
     Active Substance: DROXIDOPA
     Indication: PARKINSON^S DISEASE
     Route: 065
     Dates: start: 20180111

REACTIONS (6)
  - Decubitus ulcer [Unknown]
  - Arterial occlusive disease [Unknown]
  - Blood pressure increased [Unknown]
  - Fall [Unknown]
  - Dizziness postural [Unknown]
  - Hip fracture [Unknown]

NARRATIVE: CASE EVENT DATE: 20190410
